FAERS Safety Report 6616645-4 (Version None)
Quarter: 2010Q1

REPORT INFORMATION
  Report Type: 
  Country: None (occurrence: None)
  Receive Date: 20100305
  Receipt Date: 20100225
  Transmission Date: 20100710
  Serious: Yes (Hospitalization)
  Sender: FDA-Public Use
  Company Number: BE-ABBOTT-09P-013-0578431-00

PATIENT
  Sex: Male
  Weight: 69 kg

DRUGS (15)
  1. HUMIRA [Suspect]
     Indication: CROHN'S DISEASE
     Route: 058
     Dates: start: 20090323
  2. VENOFER [Concomitant]
     Indication: IRON DEFICIENCY ANAEMIA
     Dates: start: 20090422, end: 20090522
  3. PENTASA [Concomitant]
     Indication: CROHN'S DISEASE
     Dates: start: 20090305
  4. MEDROL [Concomitant]
     Indication: CROHN'S DISEASE
     Dates: start: 20090307, end: 20090403
  5. MEDROL [Concomitant]
     Dates: start: 20090504, end: 20090627
  6. MEDROL [Concomitant]
     Dates: start: 20090403, end: 20090504
  7. MEDROL [Concomitant]
     Dates: start: 20090410, end: 20090420
  8. MEDROL [Concomitant]
     Dates: start: 20090420, end: 20090428
  9. MEDROL [Concomitant]
     Dates: start: 20090403, end: 20090410
  10. MEDROL [Concomitant]
     Dates: start: 20090428, end: 20090627
  11. STEOVIT D3 [Concomitant]
     Indication: PROPHYLAXIS
     Route: 048
     Dates: start: 20090307
  12. STEOVIT D3 [Concomitant]
     Indication: OSTEOPENIA
  13. STEOVIT D3 [Concomitant]
     Indication: STEROID THERAPY
  14. FEROGRAD-500 [Concomitant]
     Indication: IRON DEFICIENCY ANAEMIA
     Dates: start: 20090403
  15. VITAMIN B-12 [Concomitant]
     Indication: VITAMIN B12 DEFICIENCY
     Dates: start: 20090403

REACTIONS (1)
  - LYMPHADENITIS [None]
